FAERS Safety Report 4954554-7 (Version None)
Quarter: 2006Q1

REPORT INFORMATION
  Report Type: 
  Country: None (occurrence: None)
  Receive Date: 20060322
  Receipt Date: 20060314
  Transmission Date: 20060701
  Serious: Yes (Life-Threatening)
  Sender: FDA-Public Use
  Company Number: 310004M06FRA

PATIENT
  Age: 26 Year
  Sex: Female
  Weight: 54 kg

DRUGS (2)
  1. GONAL-F [Suspect]
     Indication: OVULATION INDUCTION
     Dates: start: 19990910, end: 19990917
  2. DECAPEPTYL [Concomitant]

REACTIONS (20)
  - ABDOMINAL DISTENSION [None]
  - AMENORRHOEA [None]
  - APHASIA [None]
  - CEREBRAL ARTERY EMBOLISM [None]
  - CEREBRAL ARTERY OCCLUSION [None]
  - CHEST PAIN [None]
  - COAGULOPATHY [None]
  - DRUG EXPOSURE BEFORE PREGNANCY [None]
  - DYSGRAPHIA [None]
  - HAEMOCONCENTRATION [None]
  - HEMIPLEGIA [None]
  - ISCHAEMIC STROKE [None]
  - OVARIAN HYPERSTIMULATION SYNDROME [None]
  - PAIN [None]
  - PREGNANCY [None]
  - PREMATURE BABY [None]
  - PULMONARY EMBOLISM [None]
  - TWIN PREGNANCY [None]
  - VENOUS THROMBOSIS [None]
  - VOMITING [None]
